FAERS Safety Report 4557072-3 (Version None)
Quarter: 2005Q1

REPORT INFORMATION
  Report Type: 
  Country: None (occurrence: None)
  Receive Date: 20050120
  Receipt Date: 20041228
  Transmission Date: 20050727
  Serious: Yes (Hospitalization)
  Sender: FDA-Public Use
  Company Number: JP-GLAXOSMITHKLINE-B0363711A

PATIENT
  Age: 62 Year
  Sex: Female
  Weight: 39 kg

DRUGS (12)
  1. PAXIL [Suspect]
     Indication: DEPRESSION
     Dosage: 10MG PER DAY
     Route: 048
     Dates: start: 20041206, end: 20041214
  2. WARFARIN [Concomitant]
     Route: 048
  3. CERCINE [Concomitant]
     Route: 048
     Dates: start: 20040101
  4. VASOLAN [Concomitant]
     Route: 048
     Dates: start: 20040101
  5. ACINON [Concomitant]
     Route: 048
     Dates: start: 20040101
  6. DIGITOXIN TAB [Concomitant]
     Route: 048
     Dates: start: 20040101
  7. HALCION [Concomitant]
     Route: 048
     Dates: start: 20040101
  8. ATP [Concomitant]
     Route: 048
     Dates: start: 20040101
  9. GASTROM [Concomitant]
     Route: 048
     Dates: start: 20040101
  10. AMLODIN [Concomitant]
     Route: 048
     Dates: start: 20040101
  11. CALTAN [Concomitant]
     Route: 048
     Dates: start: 20040101
  12. KERLONG [Concomitant]
     Route: 048
     Dates: start: 20040101

REACTIONS (3)
  - BLUNTED AFFECT [None]
  - SOMNOLENCE [None]
  - TREMOR [None]
